FAERS Safety Report 14643420 (Version 1)
Quarter: 2018Q1

REPORT INFORMATION
  Report Type: Report from Study
  Country: BE (occurrence: BE)
  Receive Date: 20180315
  Receipt Date: 20180315
  Transmission Date: 20180509
  Serious: Yes (Hospitalization)
  Sender: FDA-Public Use
  Company Number: BE-PFIZER INC-2018101293

PATIENT
  Age: 65 Year
  Sex: Female
  Weight: 52.2 kg

DRUGS (26)
  1. PEGYLATED LIPOSOMAL DOXORUBICIN HCL [Suspect]
     Active Substance: DOXORUBICIN HYDROCHLORIDE
     Dosage: 22.5 MG/M2, CYCLIC
     Dates: start: 20170412, end: 20170529
  2. FARLETUZUMAB [Suspect]
     Active Substance: FARLETUZUMAB
     Dosage: 5 MG/KG, WEEKLY
     Route: 042
     Dates: start: 20170105, end: 20170223
  3. SANDOSTATINE [Concomitant]
     Active Substance: OCTREOTIDE ACETATE
     Dosage: UNK
  4. COMBIGAN D [Concomitant]
     Dosage: UNK
  5. DAFALGAN [Concomitant]
     Active Substance: ACETAMINOPHEN
  6. SIPRALEXA [Concomitant]
     Active Substance: ESCITALOPRAM OXALATE
  7. FURADANTINE [Concomitant]
     Active Substance: NITROFURANTOIN
     Dosage: UNK
  8. BICARBONATE SODIUM [Concomitant]
     Active Substance: SODIUM BICARBONATE
  9. FARLETUZUMAB [Suspect]
     Active Substance: FARLETUZUMAB
     Indication: OVARIAN GERM CELL EMBRYONAL CARCINOMA STAGE III
     Dosage: DAILY DOSE (1-2) 5 AUC
     Route: 042
     Dates: start: 20161222, end: 20161229
  10. SODIUM CHLORIDE. [Concomitant]
     Active Substance: SODIUM CHLORIDE
     Dosage: UNK
  11. DIPIPERON [Concomitant]
     Active Substance: PIPAMPERONE
     Dosage: UNK
  12. PANTOMED /01263204/ [Concomitant]
     Active Substance: PANTOPRAZOLE SODIUM
  13. LYSANXIA [Concomitant]
     Active Substance: PRAZEPAM
  14. GLUCOSE 5% BRAUN [Concomitant]
     Active Substance: DEXTROSE
  15. D-VITAL-WLL [Concomitant]
     Dosage: 1000 MG, UNK- 880E
  16. CARBOPLATIN. [Suspect]
     Active Substance: CARBOPLATIN
     Indication: OVARIAN GERM CELL EMBRYONAL CARCINOMA STAGE III
     Dosage: 4 AUC, CYCLIC
     Route: 042
     Dates: start: 20161222, end: 20170223
  17. PEGYLATED LIPOSOMAL DOXORUBICIN HCL [Suspect]
     Active Substance: DOXORUBICIN HYDROCHLORIDE
     Indication: OVARIAN GERM CELL EMBRYONAL CARCINOMA STAGE III
     Dosage: 30 MG/M2, CYCLIC
     Dates: start: 20161222, end: 20170223
  18. FARLETUZUMAB [Suspect]
     Active Substance: FARLETUZUMAB
     Dosage: 5 MG/KG, WEEKLY
     Route: 042
     Dates: start: 20170529, end: 20170602
  19. QUESTRAN [Concomitant]
     Active Substance: CHOLESTYRAMINE
  20. FARLETUZUMAB [Suspect]
     Active Substance: FARLETUZUMAB
     Dosage: 5 MG/KG, WEEKLY
     Route: 042
     Dates: start: 20170330, end: 20170518
  21. LITICAN /00690801/ [Concomitant]
     Active Substance: ALIZAPRIDE
  22. CARBOPLATIN. [Suspect]
     Active Substance: CARBOPLATIN
     Dosage: UNK
     Dates: start: 20170412, end: 20170529
  23. FARLETUZUMAB [Suspect]
     Active Substance: FARLETUZUMAB
     Dosage: 5 MG/KG, WEEKLY
     Route: 042
     Dates: start: 20170316, end: 20170316
  24. REDOMEX [Concomitant]
     Active Substance: AMITRIPTYLINE HYDROCHLORIDE
     Dosage: UNK
  25. MAGNESOL /01918801/ [Concomitant]
     Dosage: UNK
  26. MONOPROST [Concomitant]
     Active Substance: LATANOPROST
     Dosage: UNK

REACTIONS (4)
  - Acute kidney injury [Recovered/Resolved]
  - Hyperkalaemia [Recovered/Resolved]
  - Urinary tract infection [Recovered/Resolved]
  - Thrombocytopenia [Recovered/Resolved]

NARRATIVE: CASE EVENT DATE: 20170119
